FAERS Safety Report 14268530 (Version 13)
Quarter: 2025Q4

REPORT INFORMATION
  Report Type: Spontaneous
  Country: EU (occurrence: EU)
  Receive Date: 20171211
  Receipt Date: 20251120
  Transmission Date: 20260118
  Serious: Yes (Life-Threatening, Hospitalization, Congenital Anomaly, Other)
  Sender: AUROBINDO
  Company Number: EU-FERRERINT-001968

PATIENT
  Age: 32 Week
  Sex: Male

DRUGS (6)
  1. OLMESARTAN [Suspect]
     Active Substance: OLMESARTAN
     Indication: Exposure during pregnancy
     Dosage: LAST DOSE ADMINISTERED 24 HOURS PRIOR TO C-SECTION
  2. CAPTOPRIL [Suspect]
     Active Substance: CAPTOPRIL
     Indication: Product used for unknown indication
     Dosage: UNK
  3. NICARDIPINE [Suspect]
     Active Substance: NICARDIPINE
     Indication: Product used for unknown indication
     Dosage: UNK
  4. AMLODIPINE [Concomitant]
     Active Substance: AMLODIPINE BESYLATE
     Indication: Essential hypertension
     Dosage: QD, LAST DOSE ADMINISTERED 24 HOURS PRIOR TO C-SECTION
  5. FUROSEMIDE [Concomitant]
     Active Substance: FUROSEMIDE
     Indication: Product used for unknown indication
     Dosage: UNK
  6. DOPAMINE [Concomitant]
     Active Substance: DOPAMINE HYDROCHLORIDE
     Indication: Product used for unknown indication
     Dosage: UNK
     Route: 065

REACTIONS (19)
  - Potter^s syndrome [Recovering/Resolving]
  - Pulmonary hypoplasia [Recovered/Resolved]
  - Pneumothorax [Recovered/Resolved]
  - Hypotonia neonatal [Unknown]
  - Areflexia [Recovered/Resolved]
  - Anuria [Recovered/Resolved]
  - Oligohydramnios [Not Recovered/Not Resolved]
  - Renal failure neonatal [Recovered/Resolved]
  - Hypotension [Recovered/Resolved]
  - Foetal exposure during pregnancy [Recovered/Resolved]
  - Hypertension neonatal [Unknown]
  - Foetal growth restriction [Unknown]
  - Congenital anomaly [Unknown]
  - Kidney small [Unknown]
  - Low set ears [Unknown]
  - Proteinuria [Recovered/Resolved]
  - Oliguria [Recovering/Resolving]
  - Anaemia neonatal [Recovered/Resolved]
  - Premature baby [Unknown]
